FAERS Safety Report 9617485 (Version 4)
Quarter: 2014Q2

REPORT INFORMATION
  Report Type: Spontaneous
  Country: US (occurrence: None)
  Receive Date: 20131009
  Receipt Date: 20140401
  Transmission Date: 20141212
  Serious: Yes (Hospitalization)
  Sender: FDA-Public Use
  Company Number: 2013US002603

PATIENT
  Age: 41 Year
  Sex: Male
  Weight: 158 kg

DRUGS (2)
  1. PONATINIB [Suspect]
     Indication: CHRONIC MYELOID LEUKAEMIA
     Route: 048
     Dates: start: 20121223, end: 20121223
  2. ALLOPURINOL (ALLOPURINOL) [Concomitant]

REACTIONS (5)
  - Non-cardiac chest pain [None]
  - Hypertension [None]
  - Gastroenteritis [None]
  - Pancreatic enzymes increased [None]
  - Liver function test abnormal [None]
